FAERS Safety Report 18999813 (Version 2)
Quarter: 2021Q2

REPORT INFORMATION
  Report Type: Other
  Country: US (occurrence: US)
  Receive Date: 20210312
  Receipt Date: 20210524
  Transmission Date: 20210717
  Serious: Yes (Other)
  Sender: FDA-Public Use
  Company Number: US-ROCHE-2144106

PATIENT
  Age: 67 Year
  Sex: Female

DRUGS (2)
  1. CLONAZEPAM. [Suspect]
     Active Substance: CLONAZEPAM
     Indication: RESTLESS LEGS SYNDROME
     Route: 048
  2. OCREVUS [Suspect]
     Active Substance: OCRELIZUMAB
     Indication: SECONDARY PROGRESSIVE MULTIPLE SCLEROSIS
     Dosage: DATE OF TREATMENT? 24?AUG?2020, 13?JAN?2020, 12?JUL?2019,11?JAN?2019, 11?JUL?2018, 11?JAN?2018, 05?D
     Route: 042
     Dates: start: 2018

REACTIONS (11)
  - Fall [Unknown]
  - Herpes zoster [Recovering/Resolving]
  - Femur fracture [Not Recovered/Not Resolved]
  - Anxiety [Unknown]
  - Somnolence [Unknown]
  - Off label use [Unknown]
  - Optic neuritis [Unknown]
  - Chronic obstructive pulmonary disease [Not Recovered/Not Resolved]
  - Balance disorder [Not Recovered/Not Resolved]
  - Fatigue [Not Recovered/Not Resolved]
  - Malaise [Unknown]

NARRATIVE: CASE EVENT DATE: 202010
